FAERS Safety Report 7897880-4 (Version None)
Quarter: 2011Q4

REPORT INFORMATION
  Report Type: 
  Country: None (occurrence: None)
  Receive Date: 20111107
  Receipt Date: 20111031
  Transmission Date: 20120403
  Serious: Yes (Other)
  Sender: FDA-Public Use
  Company Number: PHHY2010DK86317

PATIENT
  Sex: Male
  Weight: 74 kg

DRUGS (8)
  1. CALCIFEROL [Concomitant]
     Dates: start: 20020601, end: 20031001
  2. SODIUM FLUORIDE [Concomitant]
     Dates: start: 20020601, end: 20031001
  3. ZOMETA [Suspect]
     Indication: OSTEOPOROSIS
     Dosage: 4 MG, PER 100MI NACL
     Dates: start: 20031016
  4. DIDRONEL [Suspect]
     Route: 048
     Dates: start: 20010301, end: 20020601
  5. ZOMETA [Suspect]
     Dosage: 4 MG, PER 100MI NACL
     Dates: start: 20040715
  6. FOSAMAX [Concomitant]
     Dates: start: 20060401, end: 20070501
  7. ZOMETA [Suspect]
     Dosage: 4 MG, PER 100MI NACL
     Dates: start: 20040114
  8. FORTEO [Concomitant]

REACTIONS (4)
  - IMPAIRED HEALING [None]
  - HYPOPHAGIA [None]
  - OSTEONECROSIS OF JAW [None]
  - PAIN IN JAW [None]
